FAERS Safety Report 5369659-9 (Version None)
Quarter: 2007Q2

REPORT INFORMATION
  Report Type: 
  Country: None (occurrence: None)
  Receive Date: 20070621
  Receipt Date: 20070608
  Transmission Date: 20071010
  Serious: Yes (Hospitalization)
  Sender: FDA-Public Use
  Company Number: 2007RR-08006

PATIENT
  Age: 9 Month
  Sex: Female

DRUGS (1)
  1. ACETAMINOPHEN [Suspect]
     Dosage: 15 MG/KG, QID

REACTIONS (7)
  - BLOOD LACTIC ACID INCREASED [None]
  - CONFUSIONAL STATE [None]
  - DIARRHOEA [None]
  - HEPATOMEGALY [None]
  - HEPATOTOXICITY [None]
  - LIVER INJURY [None]
  - METABOLIC ACIDOSIS [None]
